FAERS Safety Report 16708327 (Version 3)
Quarter: 2019Q3

REPORT INFORMATION
  Report Type: Spontaneous
  Country: US (occurrence: US)
  Receive Date: 20190816
  Receipt Date: 20190903
  Transmission Date: 20191004
  Serious: Yes (Other)
  Sender: FDA-Public Use
  Company Number: US-AUROBINDO-AUR-APL-2019-046338

PATIENT

DRUGS (1)
  1. RISPERIDONE. [Suspect]
     Active Substance: RISPERIDONE
     Indication: AGGRESSION
     Dosage: UNK (0.25-0.5 MG, TWICE A DAY)
     Route: 065

REACTIONS (4)
  - Toxicity to various agents [Unknown]
  - Kidney infection [Unknown]
  - Weight increased [Unknown]
  - Drug tolerance decreased [Unknown]
